FAERS Safety Report 24531368 (Version 1)
Quarter: 2024Q4

REPORT INFORMATION
  Report Type: Spontaneous
  Country: MX (occurrence: MX)
  Receive Date: 20241022
  Receipt Date: 20241022
  Transmission Date: 20250115
  Serious: No
  Sender: ROCHE
  Company Number: MX-ROCHE-3521907

PATIENT
  Age: 4 Year
  Sex: Female
  Weight: 13.8 kg

DRUGS (7)
  1. PULMOZYME [Suspect]
     Active Substance: DORNASE ALFA
     Indication: Cystic fibrosis
     Dosage: 1 AMPOULE EACH 24 HOURS FOR 12 MONTHS
     Route: 065
     Dates: start: 20240219
  2. BUDESONIDE [Concomitant]
     Active Substance: BUDESONIDE
     Indication: Cystic fibrosis
     Dosage: NEBULIZING SUSPENSION 0.250 MG; 1 SPRAY EVERY 12 HOURS FOR 12 MONTHS
  3. ALBUTEROL [Concomitant]
     Active Substance: ALBUTEROL
     Indication: Cystic fibrosis
     Dosage: 0.5 G/100ML. 5 ATOMIZATIONS EVERY 8 HOURS FOR 12 MONTHS
  4. TOBRAMYCIN [Concomitant]
     Active Substance: TOBRAMYCIN\TOBRAMYCIN SULFATE
     Indication: Cystic fibrosis
     Dosage: SOLUTION FOR NEBULIZER 300: NEBULIZE ONE UNDILUTED AMPOULE EVERY 12 HOURS. 1 ATOMIZATION EVERY 12 HO
  5. CIPROFLOXACIN [Concomitant]
     Active Substance: CIPROFLOXACIN
     Indication: Cystic fibrosis
     Dosage: FOR 15 DAYS EACH 5 MILLILITERS CONTAIN: CIPROFLOXACIN HYDROCHLORIDE EQUIVALENT TO 250 MG OF CIPROFLO
     Route: 048
  6. AMOXICILLIN\CLAVULANIC ACID [Concomitant]
     Active Substance: AMOXICILLIN\CLAVULANIC ACID
     Indication: Cystic fibrosis
     Dosage: FOR 14 DAYS DILUTE 1 TAB IN 5 ML OF WATER, AND GIVE 4 ML EVERY 12 HOURS
     Route: 048
  7. LEVOFLOXACIN [Concomitant]
     Active Substance: LEVOFLOXACIN
     Indication: Cystic fibrosis
     Dosage: DOSE WAS NOT REPORTED

REACTIONS (6)
  - Off label use [Unknown]
  - Bronchiectasis [Unknown]
  - Crepitations [Unknown]
  - Wheezing [Unknown]
  - Pharyngitis [Unknown]
  - Pseudomonas infection [Unknown]

NARRATIVE: CASE EVENT DATE: 20240219
